FAERS Safety Report 4944379-0 (Version None)
Quarter: 2006Q1

REPORT INFORMATION
  Report Type: 
  Country: None (occurrence: None)
  Receive Date: 20060315
  Receipt Date: 20051110
  Transmission Date: 20060701
  Serious: Yes (Hospitalization, Other)
  Sender: FDA-Public Use
  Company Number: US-MERCK-0511USA02052

PATIENT
  Age: 61 Year
  Sex: Female
  Weight: 57 kg

DRUGS (1)
  1. VIOXX [Suspect]
     Indication: OSTEOARTHRITIS
     Route: 048
     Dates: start: 20000904, end: 20030109

REACTIONS (5)
  - ARTERIAL STENT INSERTION [None]
  - BLOOD GLUCOSE INCREASED [None]
  - CONVULSION [None]
  - MYOCARDIAL INFARCTION [None]
  - WOUND [None]
